FAERS Safety Report 6939766-5 (Version None)
Quarter: 2010Q3

REPORT INFORMATION
  Report Type: 
  Country: None (occurrence: None)
  Receive Date: 20100825
  Receipt Date: 20100816
  Transmission Date: 20110219
  Serious: No
  Sender: FDA-Public Use
  Company Number: US-BIOGENIDEC-2010BI028747

PATIENT
  Age: 39 Year
  Sex: Female

DRUGS (1)
  1. TYSABRI [Suspect]
     Indication: MULTIPLE SCLEROSIS
     Route: 042
     Dates: start: 20091006

REACTIONS (6)
  - DEPRESSION [None]
  - FATIGUE [None]
  - HEPATIC ENZYME INCREASED [None]
  - MUSCLE SPASTICITY [None]
  - NECK PAIN [None]
  - PAIN IN EXTREMITY [None]
